FAERS Safety Report 15101223 (Version 3)
Quarter: 2018Q3

REPORT INFORMATION
  Report Type: Report from Study
  Country: PA (occurrence: PA)
  Receive Date: 20180703
  Receipt Date: 20180921
  Transmission Date: 20181010
  Serious: Yes (Other)
  Sender: FDA-Public Use
  Company Number: PHHY2018PA030743

PATIENT
  Age: 69 Year
  Sex: Female

DRUGS (1)
  1. SANDOSTATIN LAR DEPOT [Suspect]
     Active Substance: OCTREOTIDE ACETATE
     Indication: PRODUCT USED FOR UNKNOWN INDICATION
     Dosage: 20 MG, UNK
     Route: 065
     Dates: end: 20180724

REACTIONS (10)
  - Malaise [Unknown]
  - Erythema [Unknown]
  - Feeling abnormal [Unknown]
  - Gait disturbance [Unknown]
  - Dysstasia [Unknown]
  - Pain [Unknown]
  - Nervous system disorder [Unknown]
  - Injection site erythema [Unknown]
  - Metastasis [Unknown]
  - Dizziness [Unknown]
